FAERS Safety Report 11390944 (Version 1)
Quarter: 2015Q3

REPORT INFORMATION
  Report Type: Spontaneous
  Country: DE (occurrence: None)
  Receive Date: 20150813
  Receipt Date: 20150813
  Transmission Date: 20151125
  Serious: Yes (Other)
  Sender: FDA-Public Use
  Company Number: ABR_02329_2015

PATIENT
  Age: 25 Year
  Sex: Female

DRUGS (1)
  1. AMPHETAMINE (AMPHETAMINE) [Suspect]
     Active Substance: AMPHETAMINE
     Indication: PRODUCT USED FOR UNKNOWN INDICATION
     Dosage: DF

REACTIONS (4)
  - Eosinophilic pneumonia [None]
  - Dyspnoea [None]
  - Cough [None]
  - Oxygen saturation decreased [None]
